FAERS Safety Report 21653513 (Version 3)
Quarter: 2024Q1

REPORT INFORMATION
  Report Type: Spontaneous
  Country: US (occurrence: None)
  Receive Date: 20221129
  Receipt Date: 20240123
  Transmission Date: 20240410
  Serious: No
  Sender: FDA-Public Use
  Company Number: 2022A379112

PATIENT
  Age: 63 Year
  Sex: Male

DRUGS (10)
  1. FASENRA [Suspect]
     Active Substance: BENRALIZUMAB
     Indication: Asthma
     Route: 058
  2. BUDESONIDE\FORMOTEROL [Suspect]
     Active Substance: BUDESONIDE\FORMOTEROL
     Indication: Asthma
     Route: 055
  3. PREDNISONE [Concomitant]
     Active Substance: PREDNISONE
     Route: 065
  4. OMALIZUMAB [Concomitant]
     Active Substance: OMALIZUMAB
     Route: 065
  5. MEPOLIZUMAB [Concomitant]
     Active Substance: MEPOLIZUMAB
     Route: 065
  6. ALBUTAROL MDI [Concomitant]
     Route: 065
  7. MONTELUKAST [Concomitant]
     Active Substance: MONTELUKAST SODIUM
     Route: 065
  8. OMALIZUMAB [Concomitant]
     Active Substance: OMALIZUMAB
     Route: 065
  9. MEPOLIZUMAB [Concomitant]
     Active Substance: MEPOLIZUMAB
     Route: 065
  10. DUPILUMAB [Concomitant]
     Active Substance: DUPILUMAB
     Route: 065

REACTIONS (2)
  - Middle insomnia [Recovering/Resolving]
  - Drug ineffective [Recovering/Resolving]
